FAERS Safety Report 19451612 (Version 1)
Quarter: 2021Q2

REPORT INFORMATION
  Report Type: Spontaneous
  Country: US (occurrence: US)
  Receive Date: 20210623
  Receipt Date: 20210623
  Transmission Date: 20210717
  Serious: Yes (Life-Threatening, Hospitalization, Other)
  Sender: FDA-Public Use
  Company Number: US-GRANULES-US-2021GRALIT00342

PATIENT
  Age: 17 Year
  Sex: Female

DRUGS (6)
  1. NOREPINEPHRINE. [Interacting]
     Active Substance: NOREPINEPHRINE
     Indication: SUPPORTIVE CARE
     Route: 065
  2. SODIUM BICARBONATE. [Interacting]
     Active Substance: SODIUM BICARBONATE
     Indication: SUPPORTIVE CARE
     Route: 065
  3. EPINEPHRINE. [Interacting]
     Active Substance: EPINEPHRINE
     Indication: SUPPORTIVE CARE
     Route: 065
  4. ALBUMIN [Interacting]
     Active Substance: ALBUMIN HUMAN
     Indication: SUPPORTIVE CARE
     Route: 065
  5. IBUPROFEN. [Suspect]
     Active Substance: IBUPROFEN
     Indication: PRODUCT USED FOR UNKNOWN INDICATION
     Route: 048
  6. VASOPRESSIN. [Interacting]
     Active Substance: VASOPRESSIN
     Indication: SUPPORTIVE CARE
     Route: 065

REACTIONS (9)
  - Suicide attempt [Recovering/Resolving]
  - Seizure [Recovering/Resolving]
  - Shock [Recovering/Resolving]
  - Acute kidney injury [Recovered/Resolved]
  - Depressed level of consciousness [Recovering/Resolving]
  - Multiple organ dysfunction syndrome [Recovering/Resolving]
  - Overdose [Recovering/Resolving]
  - Toxicity to various agents [Recovering/Resolving]
  - Metabolic acidosis [Recovering/Resolving]
